FAERS Safety Report 4897061-2 (Version None)
Quarter: 2006Q1

REPORT INFORMATION
  Report Type: 
  Country: None (occurrence: None)
  Receive Date: 20060127
  Receipt Date: 20060116
  Transmission Date: 20060701
  Serious: Yes (Hospitalization)
  Sender: FDA-Public Use
  Company Number: US016654

PATIENT
  Sex: Female

DRUGS (2)
  1. VIGIL [Suspect]
     Indication: HYPOPNOEA
  2. VIGIL [Suspect]
     Indication: SLEEP APNOEA SYNDROME

REACTIONS (1)
  - PULMONARY EMBOLISM [None]
